FAERS Safety Report 8832038 (Version 1)
Quarter: 2012Q4

REPORT INFORMATION
  Report Type: 
  Country: US (occurrence: US)
  Receive Date: 20121009
  Receipt Date: 20121009
  Transmission Date: 20130627
  Serious: No
  Sender: FDA-Public Use
  Company Number: US-PFIZER INC-2012249947

PATIENT
  Age: 63 Year
  Sex: Male
  Weight: 142.86 kg

DRUGS (6)
  1. LYRICA [Suspect]
     Indication: DEPRESSION
     Dosage: 100 mg, 2x/day
     Route: 048
     Dates: start: 201208, end: 201210
  2. LYRICA [Suspect]
     Indication: ANXIETY
     Dosage: 200 mg, 2x/day
     Route: 048
     Dates: start: 201210
  3. LYRICA [Suspect]
     Indication: POST-TRAUMATIC STRESS DISORDER
  4. PAROXETINE [Concomitant]
     Indication: ANXIETY
     Dosage: UNK
  5. PAROXETINE [Concomitant]
     Indication: DEPRESSION
  6. PAROXETINE [Concomitant]
     Indication: POST-TRAUMATIC STRESS DISORDER

REACTIONS (5)
  - Off label use [Unknown]
  - Drug ineffective for unapproved indication [Unknown]
  - Disturbance in attention [Unknown]
  - Somnolence [Unknown]
  - Paraesthesia [Unknown]
